FAERS Safety Report 6500644-7 (Version None)
Quarter: 2009Q4

REPORT INFORMATION
  Report Type: 
  Country: None (occurrence: None)
  Receive Date: 20091216
  Receipt Date: 20081216
  Transmission Date: 20100525
  Serious: No
  Sender: FDA-Public Use
  Company Number: A0760682A

PATIENT
  Age: 33 Year
  Sex: Male

DRUGS (1)
  1. COMMIT [Suspect]
     Dates: start: 20081116

REACTIONS (3)
  - DRY THROAT [None]
  - PARAESTHESIA ORAL [None]
  - SALIVARY HYPERSECRETION [None]
